FAERS Safety Report 16669199 (Version 1)
Quarter: 2019Q3

REPORT INFORMATION
  Report Type: Spontaneous
  Country: US (occurrence: US)
  Receive Date: 20190620
  Receipt Date: 20190620
  Transmission Date: 20191004
  Serious: No
  Sender: FDA-Public Use
  Company Number: None

PATIENT
  Sex: Female

DRUGS (2)
  1. PREDNISINE [Concomitant]
  2. GLATIRAMER ACETATE (12X1ML) 40MG/ML [Suspect]
     Active Substance: GLATIRAMER ACETATE
     Indication: MULTIPLE SCLEROSIS
     Route: 058
     Dates: start: 20190530

REACTIONS (4)
  - Multiple sclerosis relapse [None]
  - Post procedural complication [None]
  - Therapy cessation [None]
  - Sneezing [None]
